FAERS Safety Report 14226673 (Version 2)
Quarter: 2018Q1

REPORT INFORMATION
  Report Type: Report from Study
  Country: US (occurrence: US)
  Receive Date: 20171127
  Receipt Date: 20180131
  Transmission Date: 20180508
  Serious: Yes (Death, Hospitalization, Other)
  Sender: FDA-Public Use
  Company Number: US-PFIZER INC-2017376411

PATIENT
  Age: 56 Year
  Sex: Female

DRUGS (1)
  1. IBRANCE [Suspect]
     Active Substance: PALBOCICLIB
     Indication: BREAST CANCER METASTATIC
     Dosage: 125 MG, CYCLIC (125MG DAILY X 3WKS/OFF 1 WEEK)
     Route: 048
     Dates: start: 20170828, end: 20170925

REACTIONS (10)
  - Fatigue [Unknown]
  - Asthenia [Unknown]
  - Pneumonia [Unknown]
  - Leukopenia [Unknown]
  - Decreased appetite [Recovering/Resolving]
  - Acute respiratory failure [Fatal]
  - Hypercapnia [Fatal]
  - Pancytopenia [Unknown]
  - Thrombocytopenia [Unknown]
  - Hypoxia [Fatal]

NARRATIVE: CASE EVENT DATE: 2017
